FAERS Safety Report 9852119 (Version 4)
Quarter: 2014Q3

REPORT INFORMATION
  Report Type: Spontaneous
  Country: US (occurrence: None)
  Receive Date: 20140127
  Receipt Date: 20140707
  Transmission Date: 20150326
  Serious: Yes (Hospitalization, Other)
  Sender: FDA-Public Use
  Company Number: UTC-043461

PATIENT
  Age: 66 Year
  Sex: Female
  Weight: 161.4 kg

DRUGS (21)
  1. COUMADIN [Concomitant]
     Active Substance: WARFARIN SODIUM
  2. LETAIRIS [Concomitant]
     Active Substance: AMBRISENTAN
  3. PROCRIT (ERYTHROPOIETIN) [Concomitant]
  4. RENAGEL (SEVELAMER) [Concomitant]
  5. NEURONTIN (GABAPENTIN) (CAPSULE) [Concomitant]
  6. REMODULIN [Suspect]
     Active Substance: TREPROSTINIL
     Indication: PULMONARY ARTERIAL HYPERTENSION
     Dosage: 28.44 UG/KG (0.01975 UG/KG, 1 IN 1 MIN)
     Route: 042
     Dates: start: 20091015
  7. SENSIPAR (CINACALCET HYDROCHLORIDE) [Concomitant]
  8. SLOW FE (FERROUS SULFATE) [Concomitant]
  9. FOLVITE (FOLIC ACID) [Concomitant]
  10. LANTUS [Concomitant]
     Active Substance: INSULIN GLARGINE
  11. OMEPRAZOLE (OMEPRAZOLE) [Concomitant]
     Active Substance: OMEPRAZOLE
  12. ACTOS [Concomitant]
     Active Substance: PIOGLITAZONE HYDROCHLORIDE
  13. CLARITIN [Concomitant]
     Active Substance: LORATADINE
  14. PROAMATINE (MIDODRINE HYDROCHLORIDE) [Concomitant]
  15. XANAX [Concomitant]
     Active Substance: ALPRAZOLAM
  16. ZANTAC [Concomitant]
     Active Substance: RANITIDINE HYDROCHLORIDE
  17. REVATIO (SILDENAFIL CITRATE) [Concomitant]
  18. ASPIRIN (ACETYLSALICYLIC ACID) [Concomitant]
     Active Substance: ASPIRIN
  19. NEXIUM [Concomitant]
     Active Substance: ESOMEPRAZOLE MAGNESIUM
  20. VICODIN (VICODIN) [Concomitant]
     Active Substance: ACETAMINOPHEN\HYDROCODONE BITARTRATE
  21. PRAVASTATIN SODIUM (PRAVASTATIN SODIUM) [Concomitant]

REACTIONS (17)
  - Mitral valve incompetence [None]
  - Malaise [None]
  - Atelectasis [None]
  - Right atrial dilatation [None]
  - Bladder cancer [None]
  - Left ventricular dysfunction [None]
  - Dilatation ventricular [None]
  - Mitral valve calcification [None]
  - Dyspnoea [None]
  - Acute respiratory failure [None]
  - Hypotension [None]
  - Chest pain [None]
  - Abdominal discomfort [None]
  - Peripheral swelling [None]
  - Haemoglobin decreased [None]
  - Lung consolidation [None]
  - Bacterial vaginosis [None]

NARRATIVE: CASE EVENT DATE: 20140112
